FAERS Safety Report 20422151 (Version 2)
Quarter: 2022Q1

REPORT INFORMATION
  Report Type: Report from Study
  Country: BE (occurrence: BE)
  Receive Date: 20220203
  Receipt Date: 20220204
  Transmission Date: 20220424
  Serious: Yes (Death, Life-Threatening, Hospitalization, Other)
  Sender: FDA-Public Use
  Company Number: BE-PFIZER INC-202200182367

PATIENT
  Age: 87 Year
  Sex: Female
  Weight: 48 kg

DRUGS (1)
  1. VYNDAQEL [Suspect]
     Active Substance: TAFAMIDIS MEGLUMINE
     Dosage: 61 MG, DAILY
     Route: 048
     Dates: start: 20200917

REACTIONS (11)
  - Death [Fatal]
  - Hypotension [Unknown]
  - Unresponsive to stimuli [Unknown]
  - Fall [Recovering/Resolving]
  - Dyspnoea [Recovering/Resolving]
  - General physical health deterioration [Unknown]
  - Hyperkalaemia [Unknown]
  - Joint dislocation [Unknown]
  - Joint dislocation [Unknown]
  - Rib fracture [Unknown]
  - Liver disorder [Unknown]

NARRATIVE: CASE EVENT DATE: 20220112
